FAERS Safety Report 16701980 (Version 1)
Quarter: 2019Q3

REPORT INFORMATION
  Report Type: Report from Study
  Country: RU (occurrence: RU)
  Receive Date: 20190814
  Receipt Date: 20190814
  Transmission Date: 20191004
  Serious: Yes (Other)
  Sender: FDA-Public Use
  Company Number: RU-JNJFOC-20190811880

PATIENT

DRUGS (1)
  1. RISPERIDONE. [Suspect]
     Active Substance: RISPERIDONE
     Indication: SCHIZOPHRENIA
     Dosage: 4,2?0,9 MG/DAY.
     Route: 065

REACTIONS (3)
  - Type 2 diabetes mellitus [Unknown]
  - Obesity [Unknown]
  - Cardiometabolic syndrome [Unknown]
